FAERS Safety Report 4285677-6 (Version None)
Quarter: 2004Q1

REPORT INFORMATION
  Report Type: 
  Country: None (occurrence: None)
  Receive Date: 20040202
  Receipt Date: 20040122
  Transmission Date: 20041129
  Serious: Yes (Hospitalization)
  Sender: FDA-Public Use
  Company Number: MK200401-0300-1

PATIENT
  Age: 32 Year
  Sex: Male

DRUGS (1)
  1. METHADOSE [Suspect]
     Indication: DEPENDENCE
     Dosage: 35 MG, DAILY
     Dates: start: 20040117, end: 20040117

REACTIONS (2)
  - CARDIAC ARREST [None]
  - PNEUMONIA [None]
